FAERS Safety Report 11202968 (Version 1)
Quarter: 2015Q2

REPORT INFORMATION
  Report Type: Spontaneous
  Country: US (occurrence: None)
  Receive Date: 20150608
  Receipt Date: 20150608
  Transmission Date: 20150821
  Serious: No
  Sender: FDA-Public Use
  Company Number: 2015TUS002489

PATIENT
  Age: 72 Year
  Sex: Female
  Weight: 70.3 kg

DRUGS (9)
  1. DIOVAN [Concomitant]
     Active Substance: VALSARTAN
  2. OXYCONTIN [Concomitant]
     Active Substance: OXYCODONE HYDROCHLORIDE
  3. UNKNOWN ANTIBIOTIC (ANTIBIOTICS) [Concomitant]
     Active Substance: UNSPECIFIED INGREDIENT
  4. BRINTELLIX [Suspect]
     Active Substance: VORTIOXETINE HYDROBROMIDE
     Indication: MAJOR DEPRESSION
     Route: 048
     Dates: end: 20150219
  5. L-METHYLFOLATE (CALCIUM MEFOLINATE) [Concomitant]
  6. NEXIUM [Concomitant]
     Active Substance: ESOMEPRAZOLE MAGNESIUM
  7. VITAMIN D /00107901/ (ERGOCALCIFEROL) [Concomitant]
  8. VITAMIN C /00008001/ (ASCORBIC ACID) [Concomitant]
  9. VITAMIN B12 /00056201/ (CYANOCOBALAMIN) [Concomitant]

REACTIONS (4)
  - Gastrooesophageal reflux disease [None]
  - Eructation [None]
  - Nausea [None]
  - Vomiting [None]

NARRATIVE: CASE EVENT DATE: 2015
